FAERS Safety Report 4892995-7 (Version None)
Quarter: 2005Q4

REPORT INFORMATION
  Report Type: 
  Country: None (occurrence: None)
  Receive Date: 20051220
  Receipt Date: 20050829
  Transmission Date: 20060501
  Serious: Yes (Other)
  Sender: FDA-Public Use
  Company Number: 416023

PATIENT
  Sex: Female

DRUGS (3)
  1. BONIVA [Suspect]
     Dates: start: 20050815
  2. LOVACOL (LOVASTATIN) [Concomitant]
  3. HORMONE (HORMONE NOS) [Concomitant]

REACTIONS (2)
  - ABDOMINAL DISTENSION [None]
  - SHOULDER PAIN [None]
